FAERS Safety Report 5165494-5 (Version None)
Quarter: 2006Q4

REPORT INFORMATION
  Report Type: 
  Country: None (occurrence: None)
  Receive Date: 20061128
  Receipt Date: 20061113
  Transmission Date: 20070319
  Serious: Yes (Hospitalization)
  Sender: FDA-Public Use
  Company Number: 2006-150796-NL

PATIENT
  Age: 72 Year
  Sex: Male

DRUGS (3)
  1. PANCURONIUM BROMIDE [Suspect]
     Indication: INDUCTION OF ANAESTHESIA
     Dosage: 8 MG ONCE INTRAVENOUS (NOS)
     Route: 042
     Dates: start: 20040623, end: 20040623
  2. MIDAZOLAM HYDROCHLORIDE [Suspect]
     Indication: INDUCTION OF ANAESTHESIA
     Dosage: 6 MG ONCE INTRAVENOUS (NOS)
     Route: 042
     Dates: start: 20040623, end: 20040623
  3. FENTANYL CITRATE [Suspect]
     Indication: INDUCTION OF ANAESTHESIA
     Dosage: 150 MG ONCE INTRAVENOUS (NOS)
     Route: 042
     Dates: start: 20040623, end: 20040623

REACTIONS (1)
  - ANAPHYLACTOID REACTION [None]
